FAERS Safety Report 13226381 (Version 2)
Quarter: 2017Q2

REPORT INFORMATION
  Report Type: Spontaneous
  Country: JP (occurrence: JP)
  Receive Date: 20170213
  Receipt Date: 20170407
  Transmission Date: 20170830
  Serious: Yes (Disabling, Other)
  Sender: FDA-Public Use
  Company Number: JP-PFIZER INC-2017055208

PATIENT
  Age: 44 Year
  Sex: Female
  Weight: 58 kg

DRUGS (8)
  1. HYALURONATE SODIUM [Concomitant]
     Active Substance: HYALURONATE SODIUM
     Indication: KNEE DEFORMITY
     Dosage: UNK
     Route: 014
     Dates: start: 20130606, end: 20130817
  2. LYRICA [Suspect]
     Active Substance: PREGABALIN
     Dosage: 75 MG, 2X/DAY
     Route: 048
     Dates: start: 20130817, end: 20130914
  3. MUCOSTA [Concomitant]
     Active Substance: REBAMIPIDE
     Dosage: 1 TABLET, 2X/DAY
     Route: 048
     Dates: start: 20130615, end: 20130805
  4. KETOPROFEN. [Concomitant]
     Active Substance: KETOPROFEN
     Dosage: 1 TO 2 SHEETS
     Route: 062
     Dates: start: 20130615, end: 20130805
  5. LYRICA [Suspect]
     Active Substance: PREGABALIN
     Indication: HYPOAESTHESIA
     Dosage: 75 MG, 2X/DAY
     Route: 048
     Dates: start: 20121215, end: 20130418
  6. CELECOX [Concomitant]
     Active Substance: CELECOXIB
     Dosage: 1 TABLET, 2X/DAY
     Route: 048
     Dates: start: 20130615, end: 20130803
  7. LYRICA [Suspect]
     Active Substance: PREGABALIN
     Dosage: 75 MG, 2X/DAY
     Route: 048
     Dates: start: 20140606, end: 20140711
  8. HYALURONATE SODIUM [Concomitant]
     Active Substance: HYALURONATE SODIUM
     Dosage: UNK
     Route: 014
     Dates: start: 20151030, end: 20151030

REACTIONS (12)
  - Disorientation [Unknown]
  - Visual acuity reduced [Not Recovered/Not Resolved]
  - Photophobia [Unknown]
  - Visual field defect [Unknown]
  - Milia [Unknown]
  - Conjunctival oedema [Unknown]
  - Aphasia [Unknown]
  - Memory impairment [Unknown]
  - Vision blurred [Not Recovered/Not Resolved]
  - Retinal coloboma [Unknown]
  - Asthenopia [Unknown]
  - Eye pain [Unknown]

NARRATIVE: CASE EVENT DATE: 20130227
